FAERS Safety Report 5803402-1 (Version None)
Quarter: 2008Q3

REPORT INFORMATION
  Report Type: 
  Country: None (occurrence: None)
  Receive Date: 20080708
  Receipt Date: 20080701
  Transmission Date: 20090109
  Serious: Yes (Hospitalization)
  Sender: FDA-Public Use
  Company Number: US-AVENTIS-200720627GDDC

PATIENT
  Age: 49 Year
  Sex: Male
  Weight: 68 kg

DRUGS (14)
  1. TAXOTERE [Suspect]
     Indication: NON-SMALL CELL LUNG CANCER
     Route: 042
     Dates: start: 20071010, end: 20071010
  2. ANTINEOPLASTIC AND IMMUNOMODULATING AGENTS [Suspect]
     Indication: NON-SMALL CELL LUNG CANCER
     Dosage: DOSE: UNK
     Route: 048
     Dates: start: 20070820, end: 20071010
  3. CHLORPROMAZINE HYDROCHLORIDE [Concomitant]
     Indication: HICCUPS
     Dates: start: 20070901
  4. SENNA ALEXANDRINA [Concomitant]
     Indication: CONSTIPATION
     Dates: start: 20070701
  5. LORAZEPAM [Concomitant]
     Indication: ANXIETY
     Dates: start: 20060901
  6. LORAZEPAM [Concomitant]
     Dates: start: 20070711, end: 20071121
  7. LORAZEPAM [Concomitant]
     Indication: NAUSEA
     Dates: start: 20060901
  8. LORAZEPAM [Concomitant]
     Dates: start: 20070711, end: 20071121
  9. ONDANSETRON [Concomitant]
     Indication: NAUSEA
     Dates: start: 20060901, end: 20071101
  10. DRONABINOL [Concomitant]
     Indication: NAUSEA
     Dates: start: 20060901, end: 20061101
  11. FENTANYL [Concomitant]
     Indication: PAIN
     Route: 023
     Dates: start: 20040101
  12. TESTOSTERONE [Concomitant]
     Route: 023
     Dates: start: 20030101
  13. HYDROMORPHONE HYDROCHLORIDE [Concomitant]
     Indication: PAIN
     Dosage: DOSE: 4 TID
     Dates: start: 20050101
  14. VENLAFAXINE HCL [Concomitant]
     Indication: DEPRESSION
     Dates: start: 20070911

REACTIONS (3)
  - DEHYDRATION [None]
  - DIZZINESS [None]
  - FEBRILE NEUTROPENIA [None]
